FAERS Safety Report 6968689-0 (Version None)
Quarter: 2010Q3

REPORT INFORMATION
  Report Type: 
  Country: None (occurrence: None)
  Receive Date: 20100901
  Receipt Date: 20100813
  Transmission Date: 20110219
  Serious: Yes (Other)
  Sender: FDA-Public Use
  Company Number: 62-10

PATIENT
  Sex: Male

DRUGS (6)
  1. TC-99M SESTAMIBI [Suspect]
     Indication: CARDIAC IMAGING PROCEDURE
  2. RANITIDINE [Concomitant]
  3. ACETYLSALICYLIC ACID [Concomitant]
  4. TICLOPIDINE HCL [Concomitant]
  5. VALSARTEN [Concomitant]
  6. DISOPROLOL [Concomitant]

REACTIONS (2)
  - DERMATITIS EXFOLIATIVE GENERALISED [None]
  - EXCORIATION [None]
